FAERS Safety Report 5059055-6 (Version None)
Quarter: 2006Q3

REPORT INFORMATION
  Report Type: 
  Country: None (occurrence: None)
  Receive Date: 20060719
  Receipt Date: 20060710
  Transmission Date: 20061208
  Serious: Yes (Other)
  Sender: FDA-Public Use
  Company Number: 200613793BWH

PATIENT
  Age: 42 Year
  Sex: Male
  Weight: 68.9467 kg

DRUGS (11)
  1. CIPRO [Suspect]
     Dosage: 500 MG BID ORAL
     Route: 048
     Dates: start: 19980101
  2. CIPRO XR [Suspect]
     Dosage: 1000 MG BID ORAL
     Route: 048
     Dates: start: 20040401, end: 20040101
  3. NEURONTIN [Concomitant]
  4. EFFEXOR XR [Concomitant]
  5. ATIVAN [Concomitant]
  6. NEXIUM [Concomitant]
  7. DURAGESIC-100 [Concomitant]
  8. LORCET-HD [Concomitant]
  9. COMBUNOX [Concomitant]
  10. SKELAXIN [Concomitant]
  11. FLEXERIL [Concomitant]

REACTIONS (24)
  - ANGIONEUROTIC OEDEMA [None]
  - ANXIETY [None]
  - ARTHRALGIA [None]
  - ARTHROPOD BITE [None]
  - DEPRESSION [None]
  - ERYTHEMA MULTIFORME [None]
  - GUN SHOT WOUND [None]
  - HEADACHE [None]
  - IMPAIRED WORK ABILITY [None]
  - INSOMNIA [None]
  - INTENTIONAL SELF-INJURY [None]
  - MUSCLE RUPTURE [None]
  - MYALGIA [None]
  - NAIL DISORDER [None]
  - OVERDOSE [None]
  - PAIN [None]
  - PANIC ATTACK [None]
  - RASH GENERALISED [None]
  - REBOUND EFFECT [None]
  - RECTAL HAEMORRHAGE [None]
  - SKIN LESION [None]
  - SURGERY [None]
  - SWELLING FACE [None]
  - TENDON RUPTURE [None]
